FAERS Safety Report 4775283-9 (Version None)
Quarter: 2005Q3

REPORT INFORMATION
  Report Type: 
  Country: None (occurrence: None)
  Receive Date: 20050921
  Receipt Date: 20050921
  Transmission Date: 20060218
  Serious: Yes (Life-Threatening, Hospitalization)
  Sender: FDA-Public Use
  Company Number: None

PATIENT
  Sex: Female
  Weight: 14.4 kg

DRUGS (4)
  1. OMNICEF [Suspect]
     Indication: OTITIS MEDIA ACUTE
     Dosage: PO
     Route: 048
     Dates: start: 20050716, end: 20050726
  2. ZITHROMAX [Concomitant]
  3. ZYRTEC [Concomitant]
  4. OCUFLOX [Concomitant]

REACTIONS (11)
  - BLISTER [None]
  - CONJUNCTIVITIS [None]
  - OTITIS MEDIA ACUTE [None]
  - PAIN [None]
  - PRURITUS [None]
  - PYREXIA [None]
  - RASH [None]
  - RESPIRATORY DISTRESS [None]
  - RHINITIS ALLERGIC [None]
  - THERAPY NON-RESPONDER [None]
  - THERMAL BURN [None]
